FAERS Safety Report 5592515-8 (Version None)
Quarter: 2008Q1

REPORT INFORMATION
  Report Type: 
  Country: None (occurrence: None)
  Receive Date: 20080115
  Receipt Date: 20071231
  Transmission Date: 20080703
  Serious: Yes (Hospitalization, Other)
  Sender: FDA-Public Use
  Company Number: GB-ABBOTT-07P-167-0359344-00

PATIENT
  Sex: Female

DRUGS (5)
  1. DEPAKOTE [Suspect]
     Indication: MANIA
     Route: 048
     Dates: start: 20061120, end: 20070122
  2. DEPAKOTE [Suspect]
     Dates: start: 20061101, end: 20070122
  3. DEPAKOTE [Suspect]
     Dates: start: 20040101, end: 20061101
  4. QUETIAPINE [Suspect]
     Indication: MANIA
     Route: 048
     Dates: start: 20061101, end: 20070122
  5. QUETIAPINE [Suspect]
     Route: 048
     Dates: start: 20040101, end: 20061101

REACTIONS (8)
  - ACTIVATED PARTIAL THROMBOPLASTIN TIME PROLONGED [None]
  - ATRIAL FIBRILLATION [None]
  - BLEEDING TIME PROLONGED [None]
  - CONTUSION [None]
  - INTERNATIONAL NORMALISED RATIO INCREASED [None]
  - LEUKOPENIA [None]
  - NEUTROPENIA [None]
  - THROMBOCYTOPENIA [None]
